FAERS Safety Report 7397452-4 (Version None)
Quarter: 2011Q2

REPORT INFORMATION
  Report Type: 
  Country: None (occurrence: None)
  Receive Date: 20110406
  Receipt Date: 20110323
  Transmission Date: 20111010
  Serious: Yes (Other)
  Sender: FDA-Public Use
  Company Number: PHEH2008US08951

PATIENT
  Sex: Female

DRUGS (72)
  1. COUMADIN [Concomitant]
  2. CARBOPLATIN [Concomitant]
  3. FEMARA [Concomitant]
  4. DEMEROL [Concomitant]
     Dosage: 50 MG
  5. SYNTHROID [Concomitant]
     Dosage: 10 MG
  6. MIRALAX [Concomitant]
     Dosage: UNK
  7. AUGMENTAN ORAL [Concomitant]
     Dosage: UNK
  8. DECADRON [Concomitant]
     Dosage: UNK
  9. MOTRIN [Concomitant]
  10. DIPHENHYDRAMINE HYDROCHLORIDE [Concomitant]
  11. LORTAB [Concomitant]
  12. AMOXICILLIN [Concomitant]
  13. NEULASTA [Concomitant]
  14. PROCRIT                            /00909301/ [Concomitant]
     Dosage: 40,0000  / WEEKLY
     Route: 058
  15. PHENERGAN [Concomitant]
     Dosage: 25 MG
  16. EFEXOR                                  /USA/ [Concomitant]
     Dosage: UNK
  17. TRASTUZUMAB [Concomitant]
  18. FENTANYL CITRATE [Concomitant]
  19. AMOXICILLIN [Concomitant]
  20. NAPROXEN [Concomitant]
  21. MORPHINE SULFATE [Concomitant]
  22. TORADOL [Concomitant]
  23. VICODIN [Concomitant]
  24. ZOMETA [Suspect]
     Dosage: 4 MG, QMO
     Dates: start: 20020101, end: 20050210
  25. METHADONE [Concomitant]
     Dosage: 20 MG / EVERY 3 HOURS
  26. RADIATION [Concomitant]
     Indication: METASTASES TO BONE
  27. CYTOXAN [Concomitant]
  28. SALAGEN [Concomitant]
     Dosage: UNK
  29. INDOCIN - SLOW RELEASE [Concomitant]
     Dosage: UNK
  30. COMPAZINE [Concomitant]
     Dosage: UNK
  31. PROPOFOL [Concomitant]
  32. POTASSIUM [Concomitant]
  33. AREDIA [Suspect]
     Indication: METASTASES TO BONE
     Dosage: 90 MG / MONTHLY
     Dates: start: 19980101, end: 20010101
  34. CHEMOTHERAPEUTICS NOS [Concomitant]
     Indication: METASTASES TO BONE
     Dosage: UNK
     Dates: start: 19980801
  35. MEGACE [Concomitant]
  36. ADRIAMYCIN PFS [Concomitant]
  37. DURAGESIC [Concomitant]
     Dosage: 50 MCG / EVERY 3 DAYS
  38. ZYPREXA [Concomitant]
     Dosage: UNK
  39. HALOPERIDOL LACTATE [Concomitant]
  40. FAMOTIDINE [Concomitant]
  41. GEMZAR [Concomitant]
  42. DILAUDID [Concomitant]
     Dosage: 4 MG / AS NEEDED
  43. PERCOCET [Concomitant]
     Dosage: 10/325 / EVERY 4 HOURS
  44. VIOXX [Concomitant]
     Dosage: UNK
  45. FLUZONE [Concomitant]
  46. ANZEMET [Concomitant]
  47. ARIMIDEX [Concomitant]
  48. CIPRO [Concomitant]
     Dosage: 500 MG, BID
     Route: 048
  49. MUCINEX DM [Concomitant]
     Dosage: UNK
  50. ADVIL LIQUI-GELS [Concomitant]
     Dosage: UNK
  51. DOCUSATE SODIUM [Concomitant]
     Dosage: UNK
  52. TEMAZEPAM [Concomitant]
     Dosage: UNK
  53. ACTIQ [Concomitant]
  54. LYRICA [Concomitant]
  55. MIDAZOLAM HYDROCHLORIDE [Concomitant]
  56. DEXAMETHASONE [Concomitant]
  57. HERCEPTIN [Concomitant]
     Dosage: 140 MG, UNK
     Dates: end: 20050101
  58. CARBOPLATIN [Concomitant]
     Dosage: UNK
     Dates: end: 20040105
  59. XELODA [Concomitant]
  60. PROZAC [Concomitant]
     Dosage: UNK
  61. ZOFRAN [Concomitant]
     Dosage: UNK
  62. POLYETHYLENE GLYCOL [Concomitant]
  63. DARVOCET-N 50 [Concomitant]
  64. TORECAN [Concomitant]
  65. ZOFRAN [Concomitant]
  66. ZOMETA [Suspect]
     Dosage: UNK
     Dates: start: 20070701, end: 20070801
  67. FASLODEX [Concomitant]
  68. ARANESP [Concomitant]
  69. TAXOTERE [Concomitant]
     Dosage: 90 MG, UNK
  70. NAVELBINE [Concomitant]
  71. PROTONIX [Concomitant]
  72. DOLOPHINE HCL [Concomitant]

REACTIONS (62)
  - MASTICATION DISORDER [None]
  - ANXIETY [None]
  - DEPRESSION [None]
  - URINE ANALYSIS [None]
  - NEURALGIA [None]
  - NEUROPATHY PERIPHERAL [None]
  - SENSITIVITY OF TEETH [None]
  - DENTURE WEARER [None]
  - ANHEDONIA [None]
  - NAUSEA [None]
  - GASTRITIS [None]
  - SPINAL OSTEOARTHRITIS [None]
  - RED BLOOD CELLS URINE [None]
  - BONE LESION [None]
  - COLONIC STENOSIS [None]
  - BLOOD POTASSIUM DECREASED [None]
  - ATTENTION DEFICIT/HYPERACTIVITY DISORDER [None]
  - PANCYTOPENIA [None]
  - EMPHYSEMA [None]
  - VOMITING [None]
  - MUSCULOSKELETAL PAIN [None]
  - WHITE BLOOD CELL COUNT [None]
  - TOOTH ABSCESS [None]
  - DYSPNOEA [None]
  - RESPIRATORY TRACT INFECTION [None]
  - ARTERIOSCLEROSIS [None]
  - STOMATITIS [None]
  - CIRCADIAN RHYTHM SLEEP DISORDER [None]
  - DISABILITY [None]
  - PAIN [None]
  - WEIGHT DECREASED [None]
  - BACK PAIN [None]
  - OSTEOARTHRITIS [None]
  - ANAEMIA [None]
  - ANAEMIA OF MALIGNANT DISEASE [None]
  - BACTERIAL TEST NEGATIVE [None]
  - URINARY TRACT INFECTION [None]
  - RECTAL HAEMORRHAGE [None]
  - ADRENAL ADENOMA [None]
  - HYPERSOMNIA [None]
  - DENTAL CARIES [None]
  - CERVICAL SPINAL STENOSIS [None]
  - GRANULOCYTOPENIA [None]
  - MUSCULOSKELETAL STIFFNESS [None]
  - COMPRESSION FRACTURE [None]
  - PANCOAST'S TUMOUR [None]
  - AXILLARY MASS [None]
  - FASCIITIS [None]
  - OSTEONECROSIS OF JAW [None]
  - INJURY [None]
  - TOOTHACHE [None]
  - IMPAIRED HEALING [None]
  - MALNUTRITION [None]
  - METASTASES TO BONE [None]
  - PYREXIA [None]
  - DEAFNESS [None]
  - BONE MARROW FAILURE [None]
  - BONE DISORDER [None]
  - BREAST CANCER METASTATIC [None]
  - NECK PAIN [None]
  - INTERVERTEBRAL DISC PROTRUSION [None]
  - NEOPLASM MALIGNANT [None]
